FAERS Safety Report 11317544 (Version 1)
Quarter: 2015Q3

REPORT INFORMATION
  Report Type: Spontaneous
  Country: IT (occurrence: IT)
  Receive Date: 20150728
  Receipt Date: 20150728
  Transmission Date: 20151125
  Serious: Yes (Life-Threatening)
  Sender: FDA-Public Use
  Company Number: IT-BAYER-2015-388114

PATIENT
  Age: 84 Year
  Sex: Male

DRUGS (2)
  1. CARDIOASPIRIN [Suspect]
     Active Substance: ASPIRIN
     Indication: ATRIAL FIBRILLATION
     Dosage: DAILY DOSE 100 MG
     Dates: start: 20140101
  2. RANITIDINE [Concomitant]
     Active Substance: RANITIDINE\RANITIDINE HYDROCHLORIDE
     Dosage: DAILY DOSE 150 MG
     Dates: start: 20140101

REACTIONS (2)
  - Gastroduodenal ulcer [Recovering/Resolving]
  - Haematemesis [Recovering/Resolving]

NARRATIVE: CASE EVENT DATE: 20150719
